FAERS Safety Report 5562880-6 (Version None)
Quarter: 2007Q4

REPORT INFORMATION
  Report Type: 
  Country: None (occurrence: None)
  Receive Date: 20071212
  Receipt Date: 20071212
  Transmission Date: 20080405
  Serious: Yes (Hospitalization)
  Sender: FDA-Public Use
  Company Number: None

PATIENT
  Sex: Female
  Weight: 59 kg

DRUGS (3)
  1. CISPLATIN [Suspect]
     Dosage: 50 MG
  2. DOXORUBICIN HYDROCHLORIDE [Suspect]
     Dosage: 74 MG
  3. TAXOL [Suspect]
     Dosage: 82 MG

REACTIONS (2)
  - NEUTROPENIA [None]
  - THROMBOCYTOPENIA [None]
